FAERS Safety Report 7586236-X (Version None)
Quarter: 2011Q3

REPORT INFORMATION
  Report Type: 
  Country: None (occurrence: None)
  Receive Date: 20110701
  Receipt Date: 20110622
  Transmission Date: 20111222
  Serious: Yes (Other)
  Sender: FDA-Public Use
  Company Number: GB-AMGEN-GBRSP2011022297

PATIENT
  Age: 54 Year
  Sex: Female
  Weight: 66 kg

DRUGS (7)
  1. ATENOLOL [Concomitant]
     Dosage: 50 MG, UNK
     Route: 048
  2. AZULFIDINE [Concomitant]
     Dosage: 1 G, 2X/DAY
     Route: 048
     Dates: start: 20101101
  3. DILTIAZEM [Concomitant]
     Dosage: 180 MG, UNK
     Route: 048
  4. HYDROXYCHLOROQUINE SULFATE [Concomitant]
     Indication: CARDIOVERSION
     Dosage: 200 MG, 2X/DAY
     Route: 048
     Dates: start: 20110201
  5. WARFARIN SODIUM [Interacting]
     Indication: ATRIAL FIBRILLATION
     Dosage: UNK
     Route: 048
     Dates: start: 20100101
  6. ASPIRIN [Concomitant]
  7. ENBREL [Suspect]
     Indication: RHEUMATOID ARTHRITIS
     Dosage: 50 MG, WEEKLY
     Route: 058
     Dates: start: 20110208, end: 20110430

REACTIONS (4)
  - DRUG INTERACTION [None]
  - RHEUMATOID ARTHRITIS [None]
  - ASTHENIA [None]
  - INTERNATIONAL NORMALISED RATIO INCREASED [None]
